FAERS Safety Report 9858230 (Version 3)
Quarter: 2014Q1

REPORT INFORMATION
  Report Type: Spontaneous
  Country: US (occurrence: US)
  Receive Date: 20140131
  Receipt Date: 20140324
  Transmission Date: 20141002
  Serious: Yes (Other)
  Sender: FDA-Public Use
  Company Number: US-JNJFOC-20140112131

PATIENT
  Age: 50 Year
  Sex: Male
  Weight: 100.25 kg

DRUGS (7)
  1. STELARA [Suspect]
     Indication: PSORIASIS
     Dosage: TOTAL 13 DOSES RECEIVED.
     Route: 058
     Dates: start: 20110112
  2. LOVAZA [Concomitant]
     Indication: HYPERLIPIDAEMIA
     Route: 065
  3. AMMONIUM LACTATE [Concomitant]
     Indication: PSORIASIS
     Route: 061
     Dates: start: 2010
  4. BETAMETHASONE VALERATE [Concomitant]
     Indication: PSORIASIS
     Dosage: AS NECESSARY
     Route: 061
     Dates: start: 2010
  5. BACTROBAN [Concomitant]
     Indication: INFECTION
     Dosage: FOR 5 DAYS/MONTH
     Route: 061
     Dates: start: 2007
  6. TOPICORT CREAM [Concomitant]
     Indication: PSORIASIS
     Dosage: AS NECESSARY
     Route: 061
     Dates: start: 2000
  7. CRESTOR [Concomitant]
     Indication: HYPERLIPIDAEMIA
     Route: 065

REACTIONS (3)
  - Paronychia [Recovered/Resolved]
  - Cellulitis [Recovered/Resolved]
  - Balanoposthitis [Recovered/Resolved]
